FAERS Safety Report 9605644 (Version 1)
Quarter: 2013Q4

REPORT INFORMATION
  Report Type: Other
  Country: CH (occurrence: CH)
  Receive Date: 20131008
  Receipt Date: 20131008
  Transmission Date: 20140711
  Serious: Yes (Hospitalization)
  Sender: FDA-Public Use
  Company Number: CH-PURDUE-DEU-2013-0012436

PATIENT
  Age: 67 Year
  Sex: Female

DRUGS (3)
  1. NON-PMN MORPHINE SULFATE [Suspect]
     Indication: BACK PAIN
     Route: 037
  2. CALCIUM CARBONATE [Suspect]
     Indication: OSTEOPOROSIS
     Route: 065
  3. THIAZIDE DIURECTIC [Suspect]
     Indication: POLYURIA
     Route: 065

REACTIONS (4)
  - Milk-alkali syndrome [Recovered/Resolved]
  - Hypercalcaemia [Recovered/Resolved]
  - Overdose [Unknown]
  - Vomiting [Unknown]
